FAERS Safety Report 24407706 (Version 6)
Quarter: 2025Q2

REPORT INFORMATION
  Report Type: Spontaneous
  Country: JP (occurrence: JP)
  Receive Date: 20241007
  Receipt Date: 20250429
  Transmission Date: 20250716
  Serious: Yes (Hospitalization, Disabling, Other)
  Sender: GLAXOSMITHKLINE
  Company Number: JP-GSK-JP2024JPN121053

PATIENT

DRUGS (9)
  1. DAPRODUSTAT [Suspect]
     Active Substance: DAPRODUSTAT
     Indication: Nephrogenic anaemia
     Route: 048
     Dates: start: 202309
  2. DAPRODUSTAT [Suspect]
     Active Substance: DAPRODUSTAT
     Dosage: 8 MG, 1D
     Route: 048
     Dates: start: 20231106
  3. MIRCERA [Concomitant]
     Active Substance: METHOXY POLYETHYLENE GLYCOL-EPOETIN BETA
     Indication: Nephrogenic anaemia
  4. ENTRESTO [Concomitant]
     Active Substance: SACUBITRIL\VALSARTAN
     Indication: Hypertension
     Dosage: 200 MG, 1D
     Dates: start: 20221228
  5. ROSUVASTATIN [Concomitant]
     Active Substance: ROSUVASTATIN
     Indication: Dyslipidaemia
     Dosage: 2.5 MG, 1D
  6. ALFACALCIDOL [Concomitant]
     Active Substance: ALFACALCIDOL
     Indication: Hypocalcaemia
     Dosage: 0.25 ?G, 1D
     Dates: start: 20220914
  7. LANSOPRAZOLE [Concomitant]
     Active Substance: LANSOPRAZOLE
     Indication: Gastrooesophageal reflux disease
     Dosage: 15 MG, 1D
     Dates: start: 20230522
  8. PANTETHINE [Concomitant]
     Active Substance: PANTETHINE
     Indication: Constipation
     Dosage: 100 MG, TID
     Dates: start: 20230111
  9. ATARAX [Concomitant]
     Active Substance: HYDROXYZINE HYDROCHLORIDE
     Indication: Pruritus
     Dosage: 10 MG, 1D
     Dates: start: 20221214

REACTIONS (19)
  - Cardiac failure [Recovering/Resolving]
  - Cerebral infarction [Recovering/Resolving]
  - Hypothyroidism [Recovering/Resolving]
  - Coronary artery occlusion [Unknown]
  - Stress cardiomyopathy [Recovering/Resolving]
  - Embolism arterial [Recovering/Resolving]
  - Cerebral artery embolism [Recovering/Resolving]
  - COVID-19 pneumonia [Recovered/Resolved]
  - Myocardial ischaemia [Not Recovered/Not Resolved]
  - Pneumonia bacterial [Unknown]
  - Embolism [Unknown]
  - Viral myocarditis [Unknown]
  - Decreased appetite [Unknown]
  - Myalgia [Unknown]
  - Paresis [Unknown]
  - Silent thyroiditis [Unknown]
  - Haemoglobin increased [Unknown]
  - Hyperphosphataemia [Unknown]
  - Device related infection [Unknown]

NARRATIVE: CASE EVENT DATE: 20240401
